FAERS Safety Report 25040321 (Version 1)
Quarter: 2025Q1

REPORT INFORMATION
  Report Type: Spontaneous
  Country: US (occurrence: US)
  Receive Date: 20250305
  Receipt Date: 20250305
  Transmission Date: 20250408
  Serious: No
  Sender: CSL BEHRING
  Company Number: US-BEH-2025197372

PATIENT
  Sex: Female

DRUGS (28)
  1. HIZENTRA [Suspect]
     Active Substance: HUMAN IMMUNOGLOBULIN G
     Indication: Selective IgM immunodeficiency
     Dosage: 8 G, QW
     Route: 058
  2. CLONIDINE HYDROCHLORIDE [Concomitant]
     Active Substance: CLONIDINE HYDROCHLORIDE
  3. ASPIRIN [Concomitant]
     Active Substance: ASPIRIN
  4. BENZONATATE [Concomitant]
     Active Substance: BENZONATATE
  5. BUTALBITAL [Concomitant]
     Active Substance: BUTALBITAL
  6. CALCIPOTRIENE [Concomitant]
     Active Substance: CALCIPOTRIENE
  7. CALCIUM CARBONATE [Concomitant]
     Active Substance: CALCIUM CARBONATE
  8. CHOLESTYRAMINE [Concomitant]
     Active Substance: CHOLESTYRAMINE
  9. CLINDAMYCIN [Concomitant]
     Active Substance: CLINDAMYCIN
  10. DESOXIMETASONE [Concomitant]
     Active Substance: DESOXIMETASONE
  11. HYDROCODONE [Concomitant]
     Active Substance: HYDROCODONE
  12. LISINOPRIL [Concomitant]
     Active Substance: LISINOPRIL
  13. MECLIZINE [Concomitant]
     Active Substance: MECLIZINE HYDROCHLORIDE
  14. METOPROLOL [Concomitant]
     Active Substance: METOPROLOL
  15. MODAFINIL [Concomitant]
     Active Substance: MODAFINIL
  16. PROAIR HFA [Concomitant]
     Active Substance: ALBUTEROL SULFATE
  17. PROBIOTICS NOS [Concomitant]
     Active Substance: PROBIOTICS NOS
  18. RECLAST [Concomitant]
     Active Substance: ZOLEDRONIC ACID
  19. SALSALATE [Concomitant]
     Active Substance: SALSALATE
  20. SIMVASTATIN [Concomitant]
     Active Substance: SIMVASTATIN
  21. SUMATRIPTAN [Concomitant]
     Active Substance: SUMATRIPTAN
  22. TOPIRAMATE [Concomitant]
     Active Substance: TOPIRAMATE
  23. VITAMIN D3 [Concomitant]
     Active Substance: CHOLECALCIFEROL
  24. VOLTAREN [Concomitant]
     Active Substance: DICLOFENAC SODIUM
  25. MUPIROCIN [Concomitant]
     Active Substance: MUPIROCIN
  26. ONDANSETRON [Concomitant]
     Active Substance: ONDANSETRON
  27. PANTOPRAZOLE [Concomitant]
     Active Substance: PANTOPRAZOLE
  28. OLOPATADINE [Concomitant]
     Active Substance: OLOPATADINE

REACTIONS (3)
  - COVID-19 [Unknown]
  - Infusion site pruritus [Unknown]
  - Migraine [Unknown]
